FAERS Safety Report 7503571-1 (Version None)
Quarter: 2011Q2

REPORT INFORMATION
  Report Type: 
  Country: None (occurrence: None)
  Receive Date: 20110525
  Receipt Date: 20110516
  Transmission Date: 20111010
  Serious: Yes (Other)
  Sender: FDA-Public Use
  Company Number: US-ASTRAZENECA-2010SE03755

PATIENT
  Age: 63 Year
  Sex: Female

DRUGS (2)
  1. SEROQUEL [Suspect]
     Indication: PSYCHOTIC DISORDER
     Route: 048
  2. THORAZINE [Concomitant]

REACTIONS (10)
  - LIVER INJURY [None]
  - FALL [None]
  - HEAD INJURY [None]
  - DRUG DOSE OMISSION [None]
  - PRURITUS [None]
  - LIMB DISCOMFORT [None]
  - RIB FRACTURE [None]
  - DEREALISATION [None]
  - INSOMNIA [None]
  - MIDDLE INSOMNIA [None]
